FAERS Safety Report 22743568 (Version 2)
Quarter: 2023Q4

REPORT INFORMATION
  Report Type: Spontaneous
  Country: RU (occurrence: None)
  Receive Date: 20230724
  Receipt Date: 20231023
  Transmission Date: 20240109
  Serious: Yes (Life-Threatening, Hospitalization, Other)
  Sender: FDA-Public Use
  Company Number: 2023A162965

PATIENT
  Sex: Male
  Weight: 58 kg

DRUGS (1)
  1. KOSELUGO [Suspect]
     Active Substance: SELUMETINIB
     Indication: Neurofibromatosis
     Route: 048
     Dates: start: 20230502

REACTIONS (4)
  - Fibroma [Unknown]
  - Neoplasm malignant [Unknown]
  - Limb discomfort [Unknown]
  - Pain [Unknown]
